FAERS Safety Report 4996868-0 (Version None)
Quarter: 2006Q2

REPORT INFORMATION
  Report Type: 
  Country: None (occurrence: None)
  Receive Date: 20060509
  Receipt Date: 20051004
  Transmission Date: 20061013
  Serious: Yes (Disabling)
  Sender: FDA-Public Use
  Company Number: US-MERCK-0510USA04044

PATIENT
  Age: 45 Year
  Sex: Male
  Weight: 132 kg

DRUGS (11)
  1. VIOXX [Suspect]
     Indication: LIGAMENT OPERATION
     Route: 048
     Dates: start: 20000918, end: 20021010
  2. AMOXICILLIN [Concomitant]
     Route: 065
  3. COUMADIN [Concomitant]
     Route: 065
  4. COZAAR [Concomitant]
     Route: 065
  5. HYDROCHLOROTHIAZIDE [Concomitant]
     Route: 065
  6. ACETAMINOPHEN AND HYDROCODONE BITARTRATE [Concomitant]
     Route: 065
  7. KETOROLAC TROMETHAMINE [Concomitant]
     Route: 065
  8. ACETAMINOPHEN AND OXYCODONE HYDROCHLORIDE [Concomitant]
     Route: 065
  9. PROMETHAZINE [Concomitant]
     Route: 065
  10. VIAGRA [Concomitant]
     Route: 065
  11. ACCUPRIL [Concomitant]
     Route: 065

REACTIONS (9)
  - ARTHROPATHY [None]
  - BACTERIAL INFECTION [None]
  - DEEP VEIN THROMBOSIS [None]
  - ERECTILE DYSFUNCTION [None]
  - EYE INFECTION [None]
  - FUNGAL INFECTION [None]
  - HYPERSENSITIVITY [None]
  - LIGAMENT DISORDER [None]
  - SKIN IRRITATION [None]
